FAERS Safety Report 8549873-1 (Version None)
Quarter: 2012Q3

REPORT INFORMATION
  Report Type: 
  Country: None (occurrence: None)
  Receive Date: 20120730
  Receipt Date: 20111020
  Transmission Date: 20120928
  Serious: No
  Sender: FDA-Public Use
  Company Number: US-GLAXOSMITHKLINE-A0949908A

PATIENT
  Sex: Female

DRUGS (2)
  1. IMITREX [Suspect]
  2. NAPROXEN [Suspect]

REACTIONS (1)
  - DRUG INEFFECTIVE [None]
